FAERS Safety Report 18001956 (Version 1)
Quarter: 2020Q3

REPORT INFORMATION
  Report Type: Spontaneous
  Country: CA (occurrence: CA)
  Receive Date: 20200709
  Receipt Date: 20200709
  Transmission Date: 20201103
  Serious: Yes (Life-Threatening, Hospitalization)
  Sender: FDA-Public Use
  Company Number: CA-TEVA-2020-CA-1798183

PATIENT
  Age: 15 Year
  Sex: Female
  Weight: 44 kg

DRUGS (6)
  1. VINCRISTINE SULFATE INJECTION USP [Suspect]
     Active Substance: VINCRISTINE SULFATE
     Indication: MEDULLOBLASTOMA
  2. CISPLATIN INJECTION [Suspect]
     Active Substance: CISPLATIN
     Indication: MEDULLOBLASTOMA
  3. CISPLATIN INJECTION [Suspect]
     Active Substance: CISPLATIN
     Indication: PRIMITIVE NEUROECTODERMAL TUMOUR
     Route: 065
  4. CYCLOPHOSPHAMIDE. [Suspect]
     Active Substance: CYCLOPHOSPHAMIDE
     Indication: MEDULLOBLASTOMA
  5. CYCLOPHOSPHAMIDE. [Suspect]
     Active Substance: CYCLOPHOSPHAMIDE
     Indication: PRIMITIVE NEUROECTODERMAL TUMOUR
  6. VINCRISTINE SULFATE INJECTION USP [Suspect]
     Active Substance: VINCRISTINE SULFATE
     Indication: PRIMITIVE NEUROECTODERMAL TUMOUR
     Route: 065

REACTIONS (1)
  - Febrile neutropenia [Recovered/Resolved]
